FAERS Safety Report 8384238-7 (Version None)
Quarter: 2012Q2

REPORT INFORMATION
  Report Type: 
  Country: None (occurrence: None)
  Receive Date: 20120524
  Receipt Date: 20120516
  Transmission Date: 20120825
  Serious: Yes (Hospitalization, Disabling, Other)
  Sender: FDA-Public Use
  Company Number: US-MERCK-1203USA03319

PATIENT
  Age: 79 Year
  Sex: Female
  Weight: 57 kg

DRUGS (6)
  1. FOSAMAX [Suspect]
     Route: 048
     Dates: start: 19961001
  2. CALCIUM (UNSPECIFIED) [Concomitant]
     Route: 048
  3. OS-CAL (CALCIUM CARBONATE) [Concomitant]
     Route: 048
  4. FOSAMAX [Suspect]
     Indication: OSTEOPOROSIS
     Route: 048
  5. FOSAMAX PLUS D [Suspect]
     Indication: OSTEOPOROSIS
     Route: 048
  6. FOSAMAX [Suspect]
     Route: 048

REACTIONS (35)
  - PNEUMONIA [None]
  - ARTHRALGIA [None]
  - URINARY TRACT INFECTION [None]
  - HYPOXIA [None]
  - VIRAL INFECTION [None]
  - OSTEOPOROSIS [None]
  - DIVERTICULUM INTESTINAL [None]
  - VIRAL LABYRINTHITIS [None]
  - HYPERTENSION [None]
  - STRESS FRACTURE [None]
  - LOWER GASTROINTESTINAL HAEMORRHAGE [None]
  - FATIGUE [None]
  - SUPRAVENTRICULAR EXTRASYSTOLES [None]
  - SCIATICA [None]
  - NEPHROLITHIASIS [None]
  - HYPERCHOLESTEROLAEMIA [None]
  - HYDRONEPHROSIS [None]
  - CARDIAC FAILURE CONGESTIVE [None]
  - OSTEOARTHRITIS [None]
  - UPPER RESPIRATORY TRACT INFECTION [None]
  - ROTATOR CUFF SYNDROME [None]
  - MUSCLE SPASMS [None]
  - FEMUR FRACTURE [None]
  - BREAST CANCER [None]
  - IVTH NERVE PARESIS [None]
  - MUSCULOSKELETAL PAIN [None]
  - OPTIC ATROPHY [None]
  - GALLBLADDER DISORDER [None]
  - GLAUCOMA [None]
  - LOW TURNOVER OSTEOPATHY [None]
  - ANAEMIA [None]
  - NEURODERMATITIS [None]
  - SEBORRHOEA [None]
  - LEUKOPENIA [None]
  - COUGH [None]
